FAERS Safety Report 8263446-X (Version None)
Quarter: 2012Q2

REPORT INFORMATION
  Report Type: 
  Country: None (occurrence: None)
  Receive Date: 20120405
  Receipt Date: 20120327
  Transmission Date: 20120825
  Serious: Yes (Hospitalization)
  Sender: FDA-Public Use
  Company Number: DE-EISAI INC-E2020-09953-CLI-DE

PATIENT
  Sex: Male
  Weight: 73.1 kg

DRUGS (5)
  1. ARICEPT [Suspect]
     Route: 048
     Dates: start: 20110926, end: 20120127
  2. ARICEPT [Suspect]
     Route: 048
     Dates: start: 20110919, end: 20110925
  3. ARICEPT [Suspect]
     Route: 048
     Dates: start: 20120128
  4. ARICEPT [Suspect]
     Route: 048
     Dates: start: 20101017, end: 20110707
  5. CITALOPRAM HYDROBROMIDE [Suspect]
     Indication: DEPRESSION
     Route: 048
     Dates: start: 20100601

REACTIONS (2)
  - DEVICE RELATED INFECTION [None]
  - SYNCOPE [None]
